FAERS Safety Report 4318444-5 (Version None)
Quarter: 2004Q1

REPORT INFORMATION
  Report Type: 
  Country: None (occurrence: None)
  Receive Date: 20040315
  Receipt Date: 20040304
  Transmission Date: 20041129
  Serious: Yes (Hospitalization)
  Sender: FDA-Public Use
  Company Number: 04P-056-0252401-00

PATIENT
  Age: 68 Year
  Sex: Male

DRUGS (5)
  1. BIAXIN [Suspect]
     Indication: CHRONIC OBSTRUCTIVE AIRWAYS DISEASE
     Dosage: 500 MG, 2 IN 1 D, PER ORAL
     Route: 048
     Dates: start: 20031219, end: 20031224
  2. AMBROXOL [Concomitant]
  3. SALMETEROL [Concomitant]
  4. ZOLPIDEM [Concomitant]
  5. BETAMETHASONE [Concomitant]

REACTIONS (1)
  - CYSTITIS HAEMORRHAGIC [None]
